FAERS Safety Report 8035543-5 (Version None)
Quarter: 2012Q1

REPORT INFORMATION
  Report Type: 
  Country: None (occurrence: None)
  Receive Date: 20120110
  Receipt Date: 20120110
  Transmission Date: 20120608
  Serious: Yes (Disabling)
  Sender: FDA-Public Use
  Company Number: None

PATIENT
  Sex: Female

DRUGS (1)
  1. CHLORHEXIDINE GLUCONATE [Suspect]
     Dosage: 1/2 OZ. RINSE 30 SEC. TWICE DAILY ORAL + EXPECTORATE

REACTIONS (2)
  - AGEUSIA [None]
  - ANOSMIA [None]
